FAERS Safety Report 20335855 (Version 2)
Quarter: 2022Q1

REPORT INFORMATION
  Report Type: Report from Study
  Country: DE (occurrence: DE)
  Receive Date: 20220114
  Receipt Date: 20220119
  Transmission Date: 20220423
  Serious: Yes (Other)
  Sender: FDA-Public Use
  Company Number: DE-BAYER-2022A006042

PATIENT
  Age: 29 Year
  Sex: Female

DRUGS (1)
  1. BETAFERON [Suspect]
     Active Substance: INTERFERON BETA-1B
     Indication: Multiple sclerosis
     Dosage: 125 ?G, QOD
     Route: 058
     Dates: start: 20140915

REACTIONS (5)
  - Syncope [Recovered/Resolved]
  - Cold sweat [Recovered/Resolved]
  - Feeling cold [Recovered/Resolved]
  - Dizziness [Not Recovered/Not Resolved]
  - Headache [Not Recovered/Not Resolved]

NARRATIVE: CASE EVENT DATE: 20220111
